FAERS Safety Report 25727052 (Version 1)
Quarter: 2025Q3

REPORT INFORMATION
  Report Type: Spontaneous
  Country: US (occurrence: None)
  Receive Date: 20250825
  Receipt Date: 20250825
  Transmission Date: 20251020
  Serious: Yes (Hospitalization)
  Sender: FDA-CTU
  Company Number: None

PATIENT
  Age: 76 Year
  Sex: Male

DRUGS (2)
  1. RAYALDEE [Suspect]
     Active Substance: CALCIFEDIOL
     Indication: Chronic kidney disease
     Dosage: 30 UG MICROGRAM(S) DAILY ORAL ?
     Route: 048
     Dates: start: 20230314
  2. RAYALDEE [Suspect]
     Active Substance: CALCIFEDIOL
     Indication: Hyperparathyroidism

REACTIONS (4)
  - Dialysis [None]
  - Pulmonary oedema [None]
  - Pericardial effusion [None]
  - Oedema peripheral [None]

NARRATIVE: CASE EVENT DATE: 20250813
